FAERS Safety Report 8634045 (Version 2)
Quarter: 2013Q2

REPORT INFORMATION
  Report Type: Spontaneous
  Country: US (occurrence: US)
  Receive Date: 20120626
  Receipt Date: 20130617
  Transmission Date: 20140414
  Serious: Yes (Hospitalization, Other)
  Sender: FDA-Public Use
  Company Number: US-ASTRAZENECA-2012SE35954

PATIENT
  Age: 38 Year
  Sex: Female

DRUGS (14)
  1. NEXIUM [Suspect]
     Indication: GASTROOESOPHAGEAL REFLUX DISEASE
     Route: 048
  2. NEXIUM [Suspect]
     Indication: ULCER
     Route: 048
  3. NEXIUM [Suspect]
     Indication: GASTROOESOPHAGEAL REFLUX DISEASE
     Route: 048
     Dates: start: 20100302
  4. NEXIUM [Suspect]
     Indication: ULCER
     Route: 048
     Dates: start: 20100302
  5. TOPAMAX [Concomitant]
     Indication: CONVULSION
  6. AMBIEN [Concomitant]
     Indication: SLEEP DISORDER
  7. LEXAPRO [Concomitant]
     Indication: DEPRESSION
  8. MELOXICAM [Concomitant]
     Indication: ARTHRITIS
  9. VICODIN [Concomitant]
     Indication: PAIN
  10. GABAPENTIN [Concomitant]
     Indication: COMPLEX REGIONAL PAIN SYNDROME
  11. FAMOTIDINE [Concomitant]
     Indication: GASTROOESOPHAGEAL REFLUX DISEASE
  12. SUCRALFATE [Concomitant]
     Indication: GASTROOESOPHAGEAL REFLUX DISEASE
  13. TRAMADOL [Concomitant]
     Indication: PAIN
  14. LORAZEPAM [Concomitant]
     Indication: MITRAL VALVE PROLAPSE

REACTIONS (14)
  - Convulsion [Unknown]
  - Fibula fracture [Unknown]
  - Gastrointestinal disorder [Unknown]
  - Renal disorder [Unknown]
  - Rotator cuff syndrome [Unknown]
  - Tibia fracture [Unknown]
  - Tonsillar disorder [Unknown]
  - Osteoporosis [Unknown]
  - Radius fracture [Unknown]
  - Arthritis [Unknown]
  - Bone disorder [Unknown]
  - Diabetes mellitus [Unknown]
  - Rib fracture [Unknown]
  - Depression [Unknown]
